FAERS Safety Report 24283586 (Version 1)
Quarter: 2024Q3

REPORT INFORMATION
  Report Type: Spontaneous
  Country: RU (occurrence: RU)
  Receive Date: 20240904
  Receipt Date: 20240904
  Transmission Date: 20241017
  Serious: Yes (Other)
  Sender: ABBVIE
  Company Number: RU-ABBVIE-5901229

PATIENT
  Age: 69 Year
  Sex: Female

DRUGS (4)
  1. VENETOCLAX [Suspect]
     Active Substance: VENETOCLAX
     Indication: Chronic lymphocytic leukaemia
     Dosage: 50 MILLIGRAM?HALTED VENETOCLAX FOR 3 DAYS
     Route: 048
     Dates: end: 20201121
  2. VENETOCLAX [Suspect]
     Active Substance: VENETOCLAX
     Indication: Chronic lymphocytic leukaemia
     Dosage: INCREASING THE VENETOCLAX DOSE
     Route: 048
  3. VENETOCLAX [Suspect]
     Active Substance: VENETOCLAX
     Indication: Chronic lymphocytic leukaemia
     Route: 048
  4. RITUXIMAB [Concomitant]
     Active Substance: RITUXIMAB
     Indication: Chronic lymphocytic leukaemia

REACTIONS (10)
  - COVID-19 [Unknown]
  - Body temperature increased [Unknown]
  - Pain in extremity [Unknown]
  - Asthenia [Unknown]
  - Leukopenia [Unknown]
  - Night sweats [Unknown]
  - Back pain [Unknown]
  - White blood cell count decreased [Unknown]
  - Abdominal lymphadenopathy [Unknown]
  - Feeding disorder [Unknown]

NARRATIVE: CASE EVENT DATE: 20201101
